FAERS Safety Report 5744473-0 (Version None)
Quarter: 2008Q2

REPORT INFORMATION
  Report Type: 
  Country: None (occurrence: None)
  Receive Date: 20080520
  Receipt Date: 20080507
  Transmission Date: 20081010
  Serious: Yes (Hospitalization)
  Sender: FDA-Public Use
  Company Number: JP-ASTRAZENECA-2008SE01903

PATIENT
  Age: 76 Year
  Sex: Male

DRUGS (4)
  1. BLOPRESS [Suspect]
     Indication: CARDIAC FAILURE CHRONIC
     Route: 048
     Dates: start: 20070129
  2. LASIX [Concomitant]
     Indication: CARDIAC FAILURE CHRONIC
     Route: 048
  3. ARTIST [Concomitant]
     Indication: CARDIAC FAILURE CHRONIC
     Route: 048
  4. ASPIRIN [Concomitant]
     Indication: THROMBOSIS PROPHYLAXIS
     Route: 048

REACTIONS (1)
  - CARDIAC FAILURE CHRONIC [None]
